FAERS Safety Report 6571596-9 (Version None)
Quarter: 2010Q1

REPORT INFORMATION
  Report Type: 
  Country: None (occurrence: None)
  Receive Date: 20100205
  Receipt Date: 20100129
  Transmission Date: 20100710
  Serious: Yes (Life-Threatening, Hospitalization)
  Sender: FDA-Public Use
  Company Number: DE-JNJFOC-20100200352

PATIENT
  Age: 43 Year
  Sex: Female

DRUGS (2)
  1. DOLORMIN EXTRA [Suspect]
     Indication: DRUG USE FOR UNKNOWN INDICATION
     Route: 048
  2. ALL OTHER THERAPEUTIC PRODUCTS [Suspect]
     Indication: PREMEDICATION
     Dosage: 1 LITER
     Route: 048

REACTIONS (4)
  - ANAPHYLACTIC SHOCK [None]
  - GASTROINTESTINAL PAIN [None]
  - LOSS OF CONSCIOUSNESS [None]
  - RESPIRATORY DISTRESS [None]
